FAERS Safety Report 23899794 (Version 1)
Quarter: 2024Q2

REPORT INFORMATION
  Report Type: Spontaneous
  Country: US (occurrence: None)
  Receive Date: 20240526
  Receipt Date: 20240526
  Transmission Date: 20240716
  Serious: No
  Sender: FDA-Public Use
  Company Number: US-ROCHE-3366154

PATIENT

DRUGS (1)
  1. OCREVUS [Suspect]
     Active Substance: OCRELIZUMAB
     Indication: Multiple sclerosis
     Dosage: INFUSIONS ON 12-MAR -2021 AND 6-MAR-2022
     Route: 042
     Dates: start: 2017

REACTIONS (3)
  - Stomatitis [Unknown]
  - Vaginal discharge [Unknown]
  - Infection [Unknown]

NARRATIVE: CASE EVENT DATE: 20220501
